FAERS Safety Report 21355611 (Version 1)
Quarter: 2022Q3

REPORT INFORMATION
  Report Type: Spontaneous
  Country: US (occurrence: None)
  Receive Date: 20220919
  Receipt Date: 20220919
  Transmission Date: 20221026
  Serious: No
  Sender: FDA-Public Use
  Company Number: None

PATIENT
  Sex: Male

DRUGS (1)
  1. LENALIDOMIDE [Suspect]
     Active Substance: LENALIDOMIDE
     Indication: Plasma cell myeloma
     Dosage: TAKE 1 CAPSULE (15MG) BY MOUTH 1 TIME A DAY FOR 14 DAYS ON THEN 7 DAYS OFF?
     Route: 048
     Dates: start: 202207

REACTIONS (2)
  - Taste disorder [None]
  - Diarrhoea [None]
